FAERS Safety Report 15622886 (Version 1)
Quarter: 2018Q4

REPORT INFORMATION
  Report Type: Spontaneous
  Country: BR (occurrence: BR)
  Receive Date: 20181115
  Receipt Date: 20181115
  Transmission Date: 20190205
  Serious: Yes (Other)
  Sender: FDA-Public Use
  Company Number: BR-FERRINGPH-2018FE06353

PATIENT

DRUGS (1)
  1. DDAVP [Suspect]
     Active Substance: DESMOPRESSIN ACETATE
     Indication: PRODUCT USED FOR UNKNOWN INDICATION
     Dosage: 1 ?G, DAILY
     Route: 065
     Dates: start: 20180930

REACTIONS (3)
  - Accidental overdose [Unknown]
  - Anuria [Recovered/Resolved]
  - Hyponatraemia [Unknown]

NARRATIVE: CASE EVENT DATE: 20180930
